FAERS Safety Report 7479131-8 (Version None)
Quarter: 2011Q2

REPORT INFORMATION
  Report Type: 
  Country: None (occurrence: None)
  Receive Date: 20110513
  Receipt Date: 20110422
  Transmission Date: 20111010
  Serious: No
  Sender: FDA-Public Use
  Company Number: US-B.I. PHARMACEUTICALS,INC./RIDGEFIELD-2011-BP-05767BP

PATIENT
  Age: 70 Year
  Sex: Female

DRUGS (3)
  1. SPIRIVA [Suspect]
     Indication: PULMONARY ARTERIAL HYPERTENSION
  2. SPIRIVA [Suspect]
     Indication: CHRONIC OBSTRUCTIVE PULMONARY DISEASE
     Dosage: 18 MCG
     Route: 055
     Dates: start: 20101130
  3. TRACLEER [Concomitant]
     Indication: HYPERTENSION
     Route: 048

REACTIONS (4)
  - PALPITATIONS [None]
  - PULSE ABNORMAL [None]
  - DYSPNOEA [None]
  - COUGH [None]
